FAERS Safety Report 20068213 (Version 5)
Quarter: 2022Q1

REPORT INFORMATION
  Report Type: Report from Study
  Country: US (occurrence: US)
  Receive Date: 20211115
  Receipt Date: 20220204
  Transmission Date: 20220424
  Serious: Yes (Hospitalization, Other)
  Sender: FDA-Public Use
  Company Number: US-GILEAD-2021-0556564

PATIENT
  Age: 82 Year
  Sex: Female

DRUGS (18)
  1. AMBRISENTAN [Suspect]
     Active Substance: AMBRISENTAN
     Indication: Pulmonary arterial hypertension
     Dosage: 10 MG, QD
     Route: 065
     Dates: start: 20160323
  2. AMBRISENTAN [Suspect]
     Active Substance: AMBRISENTAN
     Indication: Systemic scleroderma
  3. TAMIFLU [Concomitant]
     Active Substance: OSELTAMIVIR PHOSPHATE
  4. ZITHROMAX [Concomitant]
     Active Substance: AZITHROMYCIN DIHYDRATE
  5. NITROGLYCERIN [Concomitant]
     Active Substance: NITROGLYCERIN
  6. KLOR-CON [Concomitant]
     Active Substance: POTASSIUM CHLORIDE
  7. CEFDINIR [Concomitant]
     Active Substance: CEFDINIR
  8. SINGULAIR [Concomitant]
     Active Substance: MONTELUKAST SODIUM
  9. IRON [Concomitant]
     Active Substance: IRON
  10. ASPIRIN [Concomitant]
     Active Substance: ASPIRIN
  11. QUINAPRIL [Concomitant]
     Active Substance: QUINAPRIL
  12. METOPROLOL TARTRATE [Concomitant]
     Active Substance: METOPROLOL TARTRATE
  13. FUROSEMIDE [Concomitant]
     Active Substance: FUROSEMIDE
  14. DIGOXIN [Concomitant]
     Active Substance: DIGOXIN
  15. MULTI MINERAL [Concomitant]
  16. VITAMIN D NOS [Concomitant]
     Active Substance: VITAMIN D NOS
  17. ALBUTEROL SULFATE [Concomitant]
     Active Substance: ALBUTEROL SULFATE
  18. TYVASO [Concomitant]
     Active Substance: TREPROSTINIL

REACTIONS (8)
  - Cardiac failure congestive [Not Recovered/Not Resolved]
  - Heart rate increased [Unknown]
  - Visual impairment [Not Recovered/Not Resolved]
  - Tremor [Unknown]
  - Bed rest [Unknown]
  - Fatigue [Unknown]
  - Dyspnoea [Not Recovered/Not Resolved]
  - Wrong technique in product usage process [Recovered/Resolved]

NARRATIVE: CASE EVENT DATE: 20220101
